FAERS Safety Report 10793043 (Version 1)
Quarter: 2015Q1

REPORT INFORMATION
  Report Type: Spontaneous
  Country: US (occurrence: None)
  Receive Date: 20150212
  Receipt Date: 20150212
  Transmission Date: 20150721
  Serious: No
  Sender: FDA-Public Use
  Company Number: None

PATIENT
  Sex: Male

DRUGS (1)
  1. ACETAMINOPHEN. [Suspect]
     Active Substance: ACETAMINOPHEN

REACTIONS (6)
  - Somnolence [None]
  - Chills [None]
  - Musculoskeletal discomfort [None]
  - Mental disorder [None]
  - Feeling cold [None]
  - Back pain [None]

NARRATIVE: CASE EVENT DATE: 20150124
